APPROVED DRUG PRODUCT: EMTRIVA
Active Ingredient: EMTRICITABINE
Strength: 200MG
Dosage Form/Route: CAPSULE;ORAL
Application: N021500 | Product #001 | TE Code: AB
Applicant: GILEAD SCIENCES INC
Approved: Jul 2, 2003 | RLD: Yes | RS: Yes | Type: RX